FAERS Safety Report 8777208 (Version 1)
Quarter: 2012Q4

REPORT INFORMATION
  Report Type: 
  Country: AR (occurrence: AR)
  Receive Date: 20120911
  Receipt Date: 20120911
  Transmission Date: 20130627
  Serious: Yes (Hospitalization, Other)
  Sender: FDA-Public Use
  Company Number: AR-AMGEN-ARGSP2012056840

PATIENT
  Age: 67 Year
  Sex: Female

DRUGS (1)
  1. ENBREL [Suspect]
     Indication: RHEUMATOID ARTHRITIS
     Dosage: 50 mg, weekly
     Dates: start: 20080713

REACTIONS (5)
  - Pancreatic disorder [Unknown]
  - Hypothyroidism [Unknown]
  - Surgery [Unknown]
  - Arthritis infective [Unknown]
  - Anaemia [Unknown]
